FAERS Safety Report 5964136-6 (Version None)
Quarter: 2008Q4

REPORT INFORMATION
  Report Type: 
  Country: None (occurrence: None)
  Receive Date: 20081124
  Receipt Date: 20081114
  Transmission Date: 20090506
  Serious: Yes (Hospitalization)
  Sender: FDA-Public Use
  Company Number: US-KINGPHARMUSA00001-K200801311

PATIENT
  Age: 78 Year
  Sex: Male

DRUGS (3)
  1. ALTACE [Suspect]
     Dosage: 2.5 MG, QD
  2. BLINDED STUDY DRUG [Concomitant]
     Indication: CARDIAC FAILURE
     Dosage: UNK
     Route: 048
     Dates: start: 20080220, end: 20080730
  3. TEMERIT                            /01339101/ [Suspect]
     Dosage: 5 MG, QD

REACTIONS (5)
  - ASTHENIA [None]
  - CREPITATIONS [None]
  - DYSPNOEA [None]
  - HYPOTENSION [None]
  - LEFT VENTRICULAR DYSFUNCTION [None]
